FAERS Safety Report 7130573-X (Version None)
Quarter: 2010Q4

REPORT INFORMATION
  Report Type: 
  Country: None (occurrence: None)
  Receive Date: 20101029
  Receipt Date: 20100512
  Transmission Date: 20110411
  Serious: No
  Sender: FDA-Public Use
  Company Number: US-002063

PATIENT
  Sex: Male
  Weight: 113.3993 kg

DRUGS (8)
  1. DEGARELIX 240 MG [Suspect]
     Indication: PROSTATE CANCER
     Dosage: (240 MG  1X, 240 MG ONCE SUBCUTANEOUS)
  2. ALTACE [Concomitant]
  3. CADUET [Concomitant]
  4. GLIPIZIDE [Concomitant]
  5. IBUPROFEN [Concomitant]
  6. METFORMIN HCL [Concomitant]
  7. PLAVIX [Concomitant]
  8. ZETIA [Concomitant]

REACTIONS (1)
  - ERYTHEMA [None]
